FAERS Safety Report 7590642-7 (Version None)
Quarter: 2011Q3

REPORT INFORMATION
  Report Type: 
  Country: None (occurrence: None)
  Receive Date: 20110705
  Receipt Date: 20110629
  Transmission Date: 20111222
  Serious: Yes (Death)
  Sender: FDA-Public Use
  Company Number: DE-ASTRAZENECA-2011SE39058

PATIENT
  Sex: Female

DRUGS (5)
  1. SEROQUEL [Suspect]
     Route: 048
  2. GLIANIMON [Concomitant]
     Route: 048
  3. OMEPRAZOLE [Concomitant]
     Route: 048
  4. VALPROATE SODIUM [Concomitant]
     Route: 048
  5. DIAZEPAM [Concomitant]
     Route: 048

REACTIONS (1)
  - SUDDEN CARDIAC DEATH [None]
